FAERS Safety Report 10243183 (Version 2)
Quarter: 2014Q3

REPORT INFORMATION
  Report Type: Spontaneous
  Country: GB (occurrence: GB)
  Receive Date: 20140618
  Receipt Date: 20140808
  Transmission Date: 20150326
  Serious: No
  Sender: FDA-Public Use
  Company Number: GB-JNJFOC-20140603970

PATIENT
  Age: 16 Year
  Sex: Male

DRUGS (10)
  1. RANITIDINE [Concomitant]
     Active Substance: RANITIDINE\RANITIDINE HYDROCHLORIDE
     Route: 048
  2. MIDAZOLAM [Concomitant]
     Active Substance: MIDAZOLAM\MIDAZOLAM HYDROCHLORIDE
     Indication: AGITATION
     Dosage: 0.7 ML TO 1 ML IF AGITATED IN EVENING (MAX 3 DOSE IN 24 HRS)
     Route: 048
  3. BALNEUM [Concomitant]
     Dosage: AS DIRECTED
     Route: 065
  4. BACLOFEN. [Concomitant]
     Active Substance: BACLOFEN
     Dosage: 7: 30 AM, 2:30 PM AND 7:30 PM
     Route: 048
  5. DIMETICONE [Concomitant]
     Active Substance: DIMETHICONE
     Route: 065
  6. LAMOTRIGINE. [Concomitant]
     Active Substance: LAMOTRIGINE
     Route: 048
  7. MIDAZOLAM [Concomitant]
     Active Substance: MIDAZOLAM\MIDAZOLAM HYDROCHLORIDE
     Indication: AGITATION
     Route: 048
  8. PARACETAMOL [Concomitant]
     Active Substance: ACETAMINOPHEN
     Indication: PAIN
     Dosage: BOTH SCHOOL USE AND HOME USE
     Route: 048
  9. DURAGESIC [Suspect]
     Active Substance: FENTANYL
     Indication: PAIN MANAGEMENT
     Dosage: CUT IN HALF AND CHANGING EVERY 60 HOURS
     Route: 062
     Dates: start: 201312
  10. CETRABEN [Concomitant]
     Active Substance: PARAFFIN
     Indication: ECZEMA
     Dosage: THIN LAYER
     Route: 065

REACTIONS (2)
  - Wrong technique in drug usage process [Unknown]
  - Inappropriate schedule of drug administration [Unknown]

NARRATIVE: CASE EVENT DATE: 201312
